FAERS Safety Report 6386538-9 (Version None)
Quarter: 2009Q4

REPORT INFORMATION
  Report Type: 
  Country: None (occurrence: None)
  Receive Date: 20091002
  Receipt Date: 20090416
  Transmission Date: 20100525
  Serious: No
  Sender: FDA-Public Use
  Company Number: US-ASTRAZENECA-2009UW09523

PATIENT
  Age: 67 Year
  Sex: Female
  Weight: 56.2 kg

DRUGS (4)
  1. ARIMIDEX [Suspect]
     Route: 048
     Dates: start: 20090402
  2. VYTORIN [Concomitant]
  3. BONIVA [Concomitant]
  4. ASPIRIN [Concomitant]

REACTIONS (1)
  - OROPHARYNGEAL PAIN [None]
